FAERS Safety Report 9692905 (Version 1)
Quarter: 2013Q4

REPORT INFORMATION
  Report Type: Spontaneous
  Country: DE (occurrence: DE)
  Receive Date: 20131118
  Receipt Date: 20131118
  Transmission Date: 20140711
  Serious: Yes (Hospitalization)
  Sender: FDA-Public Use
  Company Number: GXKR2013DE003586

PATIENT
  Age: 72 Year
  Sex: Male
  Weight: 68 kg

DRUGS (4)
  1. ATORVASTATIN - 1 A PHARMA [Suspect]
     Indication: MYOCARDIAL INFARCTION
     Dosage: 20 MG, QD
     Route: 048
     Dates: start: 20130820, end: 20131101
  2. CLOPIDOGREL [Concomitant]
     Dosage: UNK
     Route: 048
     Dates: start: 20130819
  3. ASS [Concomitant]
     Dosage: 100 MG, UNK
     Route: 048
     Dates: start: 20130819
  4. VANCOMYCIN [Concomitant]
     Indication: BACTERIAL DISEASE CARRIER
     Dosage: UNK
     Route: 042
     Dates: start: 20130826, end: 20130910

REACTIONS (1)
  - Vertigo [Recovered/Resolved]
